FAERS Safety Report 7160974-5 (Version None)
Quarter: 2010Q4

REPORT INFORMATION
  Report Type: 
  Country: None (occurrence: None)
  Receive Date: 20101214
  Receipt Date: 20101206
  Transmission Date: 20110411
  Serious: Yes (Death, Hospitalization)
  Sender: FDA-Public Use
  Company Number: FR-BRISTOL-MYERS SQUIBB COMPANY-15426398

PATIENT
  Age: 37 Year
  Sex: Male
  Weight: 57 kg

DRUGS (2)
  1. BICNU [Suspect]
     Route: 042
     Dates: start: 20090122, end: 20090818
  2. TEMODAL [Suspect]
     Route: 048
     Dates: start: 20090122, end: 20090822

REACTIONS (10)
  - ALANINE AMINOTRANSFERASE INCREASED [None]
  - ASPARTATE AMINOTRANSFERASE INCREASED [None]
  - BLOOD ALKALINE PHOSPHATASE INCREASED [None]
  - GAMMA-GLUTAMYLTRANSFERASE INCREASED [None]
  - INTERSTITIAL LUNG DISEASE [None]
  - PLEURAL EFFUSION [None]
  - PNEUMONIA [None]
  - PNEUMOTHORAX [None]
  - STAPHYLOCOCCUS TEST POSITIVE [None]
  - STREPTOCOCCUS TEST POSITIVE [None]
